FAERS Safety Report 8205918-X (Version None)
Quarter: 2012Q1

REPORT INFORMATION
  Report Type: 
  Country: None (occurrence: None)
  Receive Date: 20120309
  Receipt Date: 20120228
  Transmission Date: 20120608
  Serious: Yes (Hospitalization)
  Sender: FDA-Public Use
  Company Number: DSA_55308_2012

PATIENT
  Age: 56 Year
  Sex: Male

DRUGS (7)
  1. IKOREL (IKOREL- NICORANDIL) 10 MG (NOT SPECIFIED) [Suspect]
     Indication: PRODUCT USED FOR UNKNOWN INDICATION
     Dosage: (10 MG BID ORAL)
     Route: 048
     Dates: start: 20120106, end: 20120123
  2. ROSUVASTATIN CALCIUM [Suspect]
     Indication: PRODUCT USED FOR UNKNOWN INDICATION
     Dosage: (5 MG QD ORAL)
     Route: 048
     Dates: start: 20120106, end: 20120123
  3. LASIX [Suspect]
     Indication: PRODUCT USED FOR UNKNOWN INDICATION
     Dosage: (40 MG QD ORAL)
     Route: 048
     Dates: start: 20120106, end: 20120123
  4. ACETYLSALICYLIC ACID SRT [Suspect]
     Indication: PRODUCT USED FOR UNKNOWN INDICATION
     Dosage: (75 MG QD ORAL)
     Route: 048
     Dates: start: 20120106, end: 20120123
  5. PLAVIX [Suspect]
     Indication: PRODUCT USED FOR UNKNOWN INDICATION
     Dosage: (75 MG QD ORAL)
     Route: 048
     Dates: start: 20120106, end: 20120123
  6. DILTIAZEM HYDROCHLORIDE [Suspect]
     Indication: PRODUCT USED FOR UNKNOWN INDICATION
     Dosage: (200 MG QD ORAL)
     Route: 048
     Dates: start: 20120106, end: 20120123
  7. TRIATEC /00885601/ (TRIATEC- RAMIPRIL) 2.5 MG (NOT SPECIFIED) [Suspect]
     Indication: PRODUCT USED FOR UNKNOWN INDICATION
     Dosage: (2.5 MG QD ORAL)
     Route: 048
     Dates: start: 20120106, end: 20120123

REACTIONS (1)
  - TOXIC SKIN ERUPTION [None]
